FAERS Safety Report 23902859 (Version 1)
Quarter: 2024Q2

REPORT INFORMATION
  Report Type: Spontaneous
  Country: PK (occurrence: PK)
  Receive Date: 20240527
  Receipt Date: 20240527
  Transmission Date: 20240716
  Serious: Yes (Other)
  Sender: FDA-Public Use
  Company Number: PK-PFIZER INC-2020355066

PATIENT
  Age: 32 Year
  Sex: Male

DRUGS (13)
  1. ENBREL [Suspect]
     Active Substance: BENZYL ALCOHOL\ETANERCEPT
     Indication: Ankylosing spondylitis
     Dosage: 50 MILLIGRAM, QWK
     Route: 058
  2. ENBREL [Suspect]
     Active Substance: BENZYL ALCOHOL\ETANERCEPT
     Dosage: 50 MG, CYCLIC (FORTNIGHTLY)
     Route: 058
     Dates: start: 201909
  3. ENBREL [Suspect]
     Active Substance: BENZYL ALCOHOL\ETANERCEPT
     Dosage: 50MG, EVERY TWO WEEKS
     Route: 058
     Dates: start: 202111
  4. ENBREL [Suspect]
     Active Substance: BENZYL ALCOHOL\ETANERCEPT
     Dosage: 50 MG, WEEKLY
     Route: 058
  5. DOWFEN [Concomitant]
     Indication: Product used for unknown indication
     Dosage: UNK, 3X/DAY (1+1+1)
     Route: 065
  6. TRAMPOL [Concomitant]
     Indication: Product used for unknown indication
     Dosage: UNK, 3X/DAY (1+1+1 SOS PAIN)
  7. NUBEROL [Concomitant]
     Indication: Product used for unknown indication
     Dosage: UNK
  8. NUBEROL [Concomitant]
     Dosage: UNK, 2X/DAY(1+0+1)
     Route: 065
  9. DICLOFENAC POTASSIUM [Concomitant]
     Active Substance: DICLOFENAC POTASSIUM
     Indication: Product used for unknown indication
     Dosage: 50MG 1-0-1
     Route: 065
  10. ONITA [Concomitant]
     Indication: Product used for unknown indication
     Dosage: SACHET 1-0-0
     Route: 065
  11. CELEBREX [Concomitant]
     Active Substance: CELECOXIB
     Indication: Product used for unknown indication
     Dosage: 200 MG, 2X/DAY(1+0+1)
     Route: 065
  12. Risek [Concomitant]
     Indication: Product used for unknown indication
     Dosage: 20  MG, 2X/DAY(1+0+1)
     Route: 065
  13. Risek [Concomitant]
     Dosage: 20  MG, 2X/DAY(1+0+1)
     Route: 065

REACTIONS (4)
  - Multiple system atrophy [Unknown]
  - Arthralgia [Unknown]
  - Neck pain [Unknown]
  - Off label use [Unknown]

NARRATIVE: CASE EVENT DATE: 20190901
